FAERS Safety Report 13632351 (Version 1)
Quarter: 2017Q2

REPORT INFORMATION
  Report Type: Spontaneous
  Country: US (occurrence: US)
  Receive Date: 20170531
  Receipt Date: 20170531
  Transmission Date: 20170830
  Serious: No
  Sender: FDA-Public Use
  Company Number: US-ASTELLAS-1454436

PATIENT
  Sex: Male

DRUGS (16)
  1. LYRICA [Concomitant]
     Active Substance: PREGABALIN
  2. ALEVE [Concomitant]
     Active Substance: NAPROXEN SODIUM
  3. VITAMIN E [Concomitant]
     Active Substance: .ALPHA.-TOCOPHEROL
  4. VITAMIN C [Concomitant]
     Active Substance: ASCORBIC ACID
  5. AVAPRO [Concomitant]
     Active Substance: IRBESARTAN
  6. VITAMIN B12 [Concomitant]
     Active Substance: CYANOCOBALAMIN
  7. ASPIRIN. [Concomitant]
     Active Substance: ASPIRIN
  8. SIMVASTATIN. [Concomitant]
     Active Substance: SIMVASTATIN
  9. VITAMIN D3 [Concomitant]
     Active Substance: CHOLECALCIFEROL
  10. TARCEVA [Suspect]
     Active Substance: ERLOTINIB HYDROCHLORIDE
     Indication: BRONCHIAL CARCINOMA
     Route: 048
     Dates: start: 20140604
  11. FINASTERIDE. [Concomitant]
     Active Substance: FINASTERIDE
  12. COLACE [Concomitant]
     Active Substance: DOCUSATE SODIUM
  13. FOLIC ACID. [Concomitant]
     Active Substance: FOLIC ACID
  14. DILANTIN [Concomitant]
     Active Substance: PHENYTOIN
  15. FISH OIL [Concomitant]
     Active Substance: FISH OIL
  16. ZANTAC [Concomitant]
     Active Substance: RANITIDINE HYDROCHLORIDE

REACTIONS (2)
  - Rash [Unknown]
  - Dyspepsia [Unknown]
